FAERS Safety Report 7558118-0 (Version None)
Quarter: 2011Q2

REPORT INFORMATION
  Report Type: 
  Country: None (occurrence: None)
  Receive Date: 20110620
  Receipt Date: 20110614
  Transmission Date: 20111010
  Serious: No
  Sender: FDA-Public Use
  Company Number: US-TEVA-286724USA

PATIENT
  Sex: Female
  Weight: 79.45 kg

DRUGS (3)
  1. PLAN B ONE-STEP [Suspect]
     Indication: POST COITAL CONTRACEPTION
     Dosage: 1.5 MILLIGRAM;
     Route: 048
     Dates: start: 20110609, end: 20110609
  2. PLAN B ONE-STEP [Suspect]
     Dosage: 1.5 MILLIGRAM;
     Route: 048
     Dates: start: 20110610, end: 20110610
  3. REGENE SLIM [Concomitant]
     Indication: WEIGHT DECREASED

REACTIONS (2)
  - BREAST DISCOMFORT [None]
  - PELVIC PAIN [None]
